FAERS Safety Report 6861121-7 (Version None)
Quarter: 2010Q3

REPORT INFORMATION
  Report Type: 
  Country: None (occurrence: None)
  Receive Date: 20100720
  Receipt Date: 20100708
  Transmission Date: 20110219
  Serious: Yes (Other)
  Sender: FDA-Public Use
  Company Number: FR-GENZYME-CLOF-1000993

PATIENT
  Sex: Male
  Weight: 105 kg

DRUGS (3)
  1. EVOLTRA [Suspect]
     Indication: MYELODYSPLASTIC SYNDROME
     Dosage: 5 MG/M2, UNK
     Route: 042
     Dates: start: 20100419, end: 20100428
  2. EVOLTRA [Suspect]
     Dosage: 5 MG/M2, QOD
     Route: 042
     Dates: start: 20100301, end: 20100310
  3. VIDAZA [Concomitant]
     Indication: MYELODYSPLASTIC SYNDROME
     Route: 065

REACTIONS (1)
  - MALIGNANT NEOPLASM PROGRESSION [None]
